FAERS Safety Report 7304901-6 (Version None)
Quarter: 2011Q1

REPORT INFORMATION
  Report Type: 
  Country: None (occurrence: None)
  Receive Date: 20110222
  Receipt Date: 20110210
  Transmission Date: 20110831
  Serious: Yes (Hospitalization, Other)
  Sender: FDA-Public Use
  Company Number: JP-TYCO HEALTHCARE/MALLINCKRODT-T201100136

PATIENT
  Sex: Male
  Weight: 50.9 kg

DRUGS (14)
  1. PURSENNID                          /00142207/ [Concomitant]
     Dosage: 24 MG, PRN
     Dates: start: 20101129, end: 20110124
  2. ZOMETA [Concomitant]
     Dosage: 4 MG, UNK
     Route: 042
     Dates: end: 20110104
  3. LAXOBERON [Concomitant]
     Dosage: OPTIMAL DOSE AS NEEDED
     Dates: start: 20101207, end: 20110124
  4. LYRICA [Concomitant]
     Dosage: 100 MG, QD S.I.D.
     Dates: start: 20101221, end: 20110124
  5. OXYCODONE HCL [Concomitant]
     Dosage: 10 MG, PRN
     Dates: end: 20110124
  6. RIVOTRIL [Concomitant]
     Dosage: 0.5 MG BEFORE BEDTIME
     Dates: start: 20101129, end: 20110124
  7. VOLTAREN [Concomitant]
     Dosage: OPTIMAL DOSE AS NEEDED
     Dates: end: 20110124
  8. VOLTAREN [Concomitant]
     Dosage: 25 MG, PRN
     Dates: start: 20110104, end: 20110124
  9. DIOVAN [Concomitant]
     Dosage: 40 MG/DAY S.I.D.
     Dates: end: 20110124
  10. METHADONE [Suspect]
     Indication: CANCER PAIN
     Dosage: 15 MG, TID
     Route: 048
     Dates: start: 20101122, end: 20110124
  11. TAKEPRON [Concomitant]
     Dosage: 15 MG/DAY, S.I.D
     Dates: end: 20110124
  12. CALONAL [Concomitant]
     Dosage: 1800 MG, QD
     Dates: start: 20110104, end: 20110124
  13. MUCOSTA [Concomitant]
     Dosage: 100 MG, TID
     Dates: end: 20110124
  14. MAGMITT [Concomitant]
     Dosage: 1980 MG, PRN
     Dates: start: 20101126, end: 20110124

REACTIONS (7)
  - DEHYDRATION [None]
  - HYPOKALAEMIA [None]
  - PNEUMONIA [None]
  - DECREASED APPETITE [None]
  - VOMITING [None]
  - DELIRIUM [None]
  - GAIT DISTURBANCE [None]
